FAERS Safety Report 20050770 (Version 1)
Quarter: 2021Q4

REPORT INFORMATION
  Report Type: Other
  Country: CN (occurrence: None)
  Receive Date: 20211110
  Receipt Date: 20211110
  Transmission Date: 20220303
  Serious: Yes (Other)
  Sender: FDA-Public Use
  Company Number: CN-ROCHE-2950694

PATIENT

DRUGS (3)
  1. BEVACIZUMAB [Suspect]
     Active Substance: BEVACIZUMAB
     Indication: Non-small cell lung cancer
     Route: 041
  2. PACLITAXEL [Suspect]
     Active Substance: PACLITAXEL
     Indication: Non-small cell lung cancer
     Dosage: GIVEN FOR DAY1, 21DAYS IS 1 CYCLE OF CHEMOTHERAPY, A TOTAL OF 3 CYCLES OF TREATMENT, EVERY 2 CYCLES
     Route: 041
  3. CISPLATIN [Suspect]
     Active Substance: CISPLATIN
     Indication: Non-small cell lung cancer
     Dosage: GIVEN FOR DAY2, 21DAYS IS 1 CYCLE OF CHEMOTHERAPY, A TOTAL OF 3 CYCLES OF TREATMENT, EVERY 2 CYCLES
     Route: 041

REACTIONS (1)
  - Myelosuppression [Unknown]
